FAERS Safety Report 4578870-6 (Version None)
Quarter: 2005Q1

REPORT INFORMATION
  Report Type: 
  Country: None (occurrence: None)
  Receive Date: 20050211
  Receipt Date: 20041013
  Transmission Date: 20050727
  Serious: Yes (Life-Threatening, Other)
  Sender: FDA-Public Use
  Company Number: GBWYE109214OCT04

PATIENT
  Sex: Male
  Weight: 105 kg

DRUGS (10)
  1. ENBREL [Suspect]
     Indication: RHEUMATOID ARTHRITIS
     Route: 058
     Dates: start: 20040331, end: 20040703
  2. PREDNISOLONE [Concomitant]
     Dosage: UNKNOWN
  3. METHOTREXATE [Concomitant]
     Dosage: UNKNOWN
  4. SULFASALAZINE [Concomitant]
     Dosage: UNKNOWN
  5. FOLIC ACID [Concomitant]
     Dosage: UNKNOWN
  6. FLUOXETINE [Concomitant]
     Dosage: UNKNOWN
  7. CELECOXIB [Concomitant]
     Dosage: UNKNOWN
  8. CODEINE PHOSPHATE [Concomitant]
  9. HYDROXYCHLOROQUINE SULFATE [Concomitant]
     Dosage: UNKNOWN
  10. ACETAMINOPHEN [Concomitant]

REACTIONS (5)
  - FATIGUE [None]
  - INFLUENZA LIKE ILLNESS [None]
  - NAUSEA [None]
  - SELF ESTEEM DECREASED [None]
  - SUICIDAL IDEATION [None]
